FAERS Safety Report 9335800 (Version 1)
Quarter: 2013Q2

REPORT INFORMATION
  Report Type: Spontaneous
  Country: US (occurrence: US)
  Receive Date: 20130606
  Receipt Date: 20130606
  Transmission Date: 20140414
  Serious: No
  Sender: FDA-Public Use
  Company Number: US-AMGEN-USASP2013015024

PATIENT
  Age: 55 Year
  Sex: Female
  Weight: 55.33 kg

DRUGS (5)
  1. PROLIA [Suspect]
     Indication: OSTEOPOROSIS POSTMENOPAUSAL
     Dosage: UNK
     Dates: start: 20120824
  2. ESTROGEN [Concomitant]
  3. PROGESTERONE [Concomitant]
  4. JUICE PLUS [Concomitant]
  5. CALCIUM WITH VITAMIN D             /00944201/ [Concomitant]

REACTIONS (9)
  - Hypersensitivity [Recovered/Resolved]
  - Oral herpes [Recovered/Resolved]
  - Oropharyngeal pain [Not Recovered/Not Resolved]
  - Nasopharyngitis [Recovered/Resolved]
  - Sinusitis [Recovered/Resolved]
  - Influenza [Recovered/Resolved]
  - Bronchitis [Unknown]
  - Tooth infection [Unknown]
  - Cough [Recovered/Resolved]
